FAERS Safety Report 8525915-4 (Version None)
Quarter: 2012Q3

REPORT INFORMATION
  Report Type: 
  Country: None (occurrence: None)
  Receive Date: 20120720
  Receipt Date: 20120711
  Transmission Date: 20120928
  Serious: Yes (Hospitalization, Other)
  Sender: FDA-Public Use
  Company Number: US-009507513-1201USA03708

PATIENT

DRUGS (12)
  1. FOSAMAX [Suspect]
     Indication: OSTEOPENIA
     Dosage: 70 MG, ORAL
     Route: 048
     Dates: start: 20010314, end: 20080114
  2. FOSAMAX [Suspect]
     Dosage: 70 MG, UNK
     Route: 048
     Dates: start: 20080312, end: 20110314
  3. HYDRALAZINE HCL [Concomitant]
     Indication: BLOOD PRESSURE
  4. ISOSORBIDE [Concomitant]
     Indication: BLOOD PRESSURE
  5. PREMPRO [Concomitant]
     Indication: HORMONE REPLACEMENT THERAPY
  6. VERAPAMIL [Concomitant]
     Indication: HYPERTENSION
  7. FOSAMAX [Suspect]
     Indication: OSTEOPOROSIS POSTMENOPAUSAL
     Dosage: ORAL
     Route: 048
     Dates: start: 19990101
  8. FOSAMAX [Suspect]
     Dosage: ORAL
     Dates: start: 20040113, end: 20080312
  9. CALCIUM (UNSPECIFIED) [Concomitant]
     Indication: OSTEOPOROSIS POSTMENOPAUSAL
     Dosage: 1500 MG, QD
     Route: 048
  10. VITAMIN D (UNSPECIFIED) [Concomitant]
     Indication: OSTEOPOROSIS POSTMENOPAUSAL
     Dosage: 400 IU, QD
     Route: 048
  11. ATENOLOL [Concomitant]
     Indication: HYPERTENSION
     Dosage: UNK
     Dates: start: 20040101, end: 20110101
  12. NASONEX [Concomitant]
     Indication: HYPERSENSITIVITY

REACTIONS (34)
  - RADICULOPATHY [None]
  - SKIN DISORDER [None]
  - INTRAOCULAR PRESSURE TEST ABNORMAL [None]
  - RHEUMATOID ARTHRITIS [None]
  - DRUG INTOLERANCE [None]
  - CATARACT [None]
  - MUSCULOSKELETAL PAIN [None]
  - MUSCULOSKELETAL DISCOMFORT [None]
  - GASTROOESOPHAGEAL REFLUX DISEASE [None]
  - MULTIPLE SCLEROSIS [None]
  - ANXIETY [None]
  - FRACTURED SACRUM [None]
  - VERTEBRAL FORAMINAL STENOSIS [None]
  - CYSTOCELE [None]
  - UTERINE PROLAPSE [None]
  - INTERVERTEBRAL DISC DEGENERATION [None]
  - BACTERIAL INFECTION [None]
  - FUNGAL INFECTION [None]
  - EYE INFECTION [None]
  - URINARY TRACT INFECTION [None]
  - DIZZINESS [None]
  - RIB FRACTURE [None]
  - OSTEOARTHRITIS [None]
  - FEMUR FRACTURE [None]
  - TOOTH ABSCESS [None]
  - CHONDROCALCINOSIS [None]
  - NAUSEA [None]
  - FALL [None]
  - RECTOCELE [None]
  - ARRHYTHMIA [None]
  - BLOOD CHOLESTEROL [None]
  - BACK PAIN [None]
  - GROIN PAIN [None]
  - LOW TURNOVER OSTEOPATHY [None]
